FAERS Safety Report 23319146 (Version 1)
Quarter: 2023Q4

REPORT INFORMATION
  Report Type: Spontaneous
  Country: US (occurrence: US)
  Receive Date: 20231220
  Receipt Date: 20231220
  Transmission Date: 20240110
  Serious: No
  Sender: FDA-Public Use
  Company Number: US-OPELLA-2023OHG017777

PATIENT
  Sex: Female

DRUGS (3)
  1. ROLAIDS ADVANCED ANTACID ANTI-GAS WILD BERRY [Suspect]
     Active Substance: CALCIUM CARBONATE\DIMETHICONE\MAGNESIUM HYDROXIDE
  2. ROLAIDS ADVANCED ANTACID ANTI-GAS WILD BERRY [Suspect]
     Active Substance: CALCIUM CARBONATE\DIMETHICONE\MAGNESIUM HYDROXIDE
  3. ROLAIDS ADVANCED ANTACID ANTI-GAS WILD BERRY [Suspect]
     Active Substance: CALCIUM CARBONATE\DIMETHICONE\MAGNESIUM HYDROXIDE

REACTIONS (2)
  - No adverse event [Unknown]
  - Drug ineffective [Unknown]
